FAERS Safety Report 5088097-X (Version None)
Quarter: 2006Q3

REPORT INFORMATION
  Report Type: 
  Country: None (occurrence: None)
  Receive Date: 20060823
  Receipt Date: 20060823
  Transmission Date: 20061208
  Serious: No
  Sender: FDA-Public Use
  Company Number: None

PATIENT
  Age: 64 Year
  Sex: Male
  Weight: 83.4619 kg

DRUGS (1)
  1. HEPARIN [Suspect]

REACTIONS (2)
  - DRY MOUTH [None]
  - HEPARIN-INDUCED THROMBOCYTOPENIA [None]
